FAERS Safety Report 13950300 (Version 4)
Quarter: 2018Q2

REPORT INFORMATION
  Report Type: Spontaneous
  Country: US (occurrence: US)
  Receive Date: 20170908
  Receipt Date: 20180424
  Transmission Date: 20180711
  Serious: Yes (Hospitalization)
  Sender: FDA-Public Use
  Company Number: US-DSJP-DSU-2017-135985

PATIENT

DRUGS (2)
  1. BENICAR HCT [Suspect]
     Active Substance: HYDROCHLOROTHIAZIDE\OLMESARTAN MEDOXOMIL
     Indication: HYPERTENSION
     Dosage: 20-12.5 MG, QD
     Route: 048
     Dates: start: 20120831, end: 20170106
  2. BENICAR [Suspect]
     Active Substance: OLMESARTAN MEDOXOMIL
     Indication: PRODUCT USED FOR UNKNOWN INDICATION
     Dosage: 5 MG, QD
     Route: 048
     Dates: start: 20120831, end: 20170106

REACTIONS (7)
  - Abdominal pain [Recovering/Resolving]
  - Weight decreased [Unknown]
  - Presyncope [Recovering/Resolving]
  - Diverticulitis [Unknown]
  - Hiatus hernia [Unknown]
  - Diverticulum [Unknown]
  - Polyp [Unknown]

NARRATIVE: CASE EVENT DATE: 20121030
